FAERS Safety Report 4529429-8 (Version None)
Quarter: 2004Q4

REPORT INFORMATION
  Report Type: 
  Country: None (occurrence: None)
  Receive Date: 20041202
  Receipt Date: 20040914
  Transmission Date: 20050328
  Serious: No
  Sender: FDA-Public Use
  Company Number: 200420544BWH

PATIENT
  Age: 66 Year
  Sex: Male
  Weight: 95.2554 kg

DRUGS (6)
  1. LEVITRA [Suspect]
     Indication: ERECTILE DYSFUNCTION
     Dosage: 10 MG ; 20 MG  : TOTAL DAILY, ORAL
     Route: 048
     Dates: start: 20030101
  2. LEVITRA [Suspect]
     Indication: ERECTILE DYSFUNCTION
     Dosage: 10 MG ; 20 MG  : TOTAL DAILY, ORAL
     Route: 048
     Dates: start: 20040911
  3. XANAX [Concomitant]
  4. ELAVIL [Concomitant]
  5. ULTRACET [Concomitant]
  6. ANTIBIOTICS [Concomitant]

REACTIONS (3)
  - BLOOD PRESSURE INCREASED [None]
  - DIZZINESS [None]
  - ERECTILE DYSFUNCTION [None]
